FAERS Safety Report 8277969-0 (Version None)
Quarter: 2012Q2

REPORT INFORMATION
  Report Type: 
  Country: None (occurrence: None)
  Receive Date: 20120412
  Receipt Date: 20120404
  Transmission Date: 20120825
  Serious: No
  Sender: FDA-Public Use
  Company Number: US-B.I. PHARMACEUTICALS,INC./RIDGEFIELD-2012-BP-06351BP

PATIENT
  Sex: Female

DRUGS (4)
  1. TRIAMTERENE [Concomitant]
     Dosage: 37.5 MG
     Route: 048
  2. METOPROLOL TARTRATE [Concomitant]
     Dosage: 25 MG
     Route: 048
  3. SPIRIVA [Suspect]
     Indication: EMPHYSEMA
     Dosage: 18 MCG
     Route: 055
     Dates: start: 20120330
  4. LEVOTHYROXINE SODIUM [Concomitant]
     Dosage: 125 MCG
     Route: 048

REACTIONS (1)
  - HERPES ZOSTER [None]
